FAERS Safety Report 17814234 (Version 1)
Quarter: 2020Q2

REPORT INFORMATION
  Report Type: Spontaneous
  Country: US (occurrence: US)
  Receive Date: 20200521
  Receipt Date: 20200521
  Transmission Date: 20200714
  Serious: No
  Sender: FDA-Public Use
  Company Number: US-ACCORD-176220

PATIENT
  Age: 64 Year
  Sex: Female
  Weight: 180 kg

DRUGS (1)
  1. QUETIAPINE FUMARATE ACCORD [Suspect]
     Active Substance: QUETIAPINE FUMARATE
     Indication: PRODUCT USED FOR UNKNOWN INDICATION
     Dosage: STRENGTH-300 MG,AT BEDTIME

REACTIONS (4)
  - Malaise [Unknown]
  - Nervousness [Unknown]
  - Hypoglycaemia [Unknown]
  - Feeling abnormal [Unknown]
